FAERS Safety Report 9819967 (Version 1)
Quarter: 2014Q1

REPORT INFORMATION
  Report Type: Spontaneous
  Country: US (occurrence: US)
  Receive Date: 20140116
  Receipt Date: 20140116
  Transmission Date: 20141002
  Serious: Yes (Hospitalization, Other)
  Sender: FDA-Public Use
  Company Number: US-AMGEN-USASP2014002601

PATIENT
  Age: 68 Year
  Sex: Male

DRUGS (2)
  1. ENBREL [Suspect]
     Indication: PSORIATIC ARTHROPATHY
     Dosage: 50 MG, QWK
     Route: 065
     Dates: start: 20031125
  2. HUMIRA [Concomitant]
     Dosage: UNK

REACTIONS (11)
  - Angina pectoris [Not Recovered/Not Resolved]
  - Cerebrovascular accident [Not Recovered/Not Resolved]
  - Pneumonia [Recovered/Resolved]
  - Memory impairment [Not Recovered/Not Resolved]
  - Arthritis [Recovered/Resolved]
  - Central nervous system lesion [Not Recovered/Not Resolved]
  - Psoriatic arthropathy [Not Recovered/Not Resolved]
  - Extra dose administered [Recovered/Resolved]
  - Pulmonary mass [Not Recovered/Not Resolved]
  - Rift Valley fever [Not Recovered/Not Resolved]
  - Injection site bruising [Not Recovered/Not Resolved]
